FAERS Safety Report 10151273 (Version 1)
Quarter: 2014Q2

REPORT INFORMATION
  Report Type: Report from Study
  Country: US (occurrence: US)
  Receive Date: 20140502
  Receipt Date: 20140502
  Transmission Date: 20141212
  Serious: Yes (Hospitalization, Other)
  Sender: FDA-Public Use
  Company Number: US-ABBVIE-14P-163-1229153-00

PATIENT
  Sex: Female

DRUGS (18)
  1. HUMIRA [Suspect]
     Indication: CROHN^S DISEASE
  2. HUMIRA [Suspect]
     Dates: start: 1999, end: 2007
  3. HUMIRA [Suspect]
     Dates: start: 2011
  4. HUMIRA [Suspect]
  5. METHOTREXATE [Suspect]
     Indication: PRODUCT USED FOR UNKNOWN INDICATION
     Dates: start: 2006, end: 2012
  6. ZYRTEC [Concomitant]
     Indication: HYPERSENSITIVITY
  7. ANTISPASMODIC [Concomitant]
     Indication: CROHN^S DISEASE
  8. LOMOTIL [Concomitant]
     Indication: PRODUCT USED FOR UNKNOWN INDICATION
  9. HIGH DOSE ANTIBIOTICS [Concomitant]
     Indication: PRODUCT USED FOR UNKNOWN INDICATION
  10. DIGOXIN [Concomitant]
     Indication: PRODUCT USED FOR UNKNOWN INDICATION
  11. STEROIDS [Concomitant]
     Indication: PRODUCT USED FOR UNKNOWN INDICATION
  12. STEROIDS [Concomitant]
  13. LISINOPRIL [Concomitant]
     Indication: HYPERTENSION
     Dates: start: 2007
  14. LISINOPRIL [Concomitant]
  15. HUMILIN SLIDING SCALE [Concomitant]
     Indication: DIABETES MELLITUS
     Dates: start: 2007, end: 2008
  16. INSULIN [Concomitant]
     Indication: PRODUCT USED FOR UNKNOWN INDICATION
  17. METFORMIN [Concomitant]
     Indication: PRODUCT USED FOR UNKNOWN INDICATION
     Dates: start: 2008
  18. METOPROLOL [Concomitant]
     Indication: PRODUCT USED FOR UNKNOWN INDICATION

REACTIONS (27)
  - Diabetes mellitus [Unknown]
  - Intestinal resection [Not Recovered/Not Resolved]
  - Sarcoidosis [Unknown]
  - Pyrexia [Unknown]
  - Night sweats [Unknown]
  - Fatigue [Unknown]
  - Pyrexia [Recovered/Resolved]
  - Vomiting [Unknown]
  - Mobility decreased [Unknown]
  - Malaise [Unknown]
  - Weight decreased [Unknown]
  - Asthma [Unknown]
  - Heart rate increased [Unknown]
  - Unevaluable event [Unknown]
  - Blood pressure decreased [Unknown]
  - Dyspnoea [Unknown]
  - Lung disorder [Unknown]
  - Pulmonary fibrosis [Unknown]
  - Hepatomegaly [Unknown]
  - Splenomegaly [Unknown]
  - Sarcoidosis [Unknown]
  - Crohn^s disease [Unknown]
  - Hypophagia [Unknown]
  - Cerebral sarcoidosis [Unknown]
  - Small fibre neuropathy [Unknown]
  - Memory impairment [Unknown]
  - Fluid intake reduced [Unknown]
